FAERS Safety Report 9607467 (Version 1)
Quarter: 2013Q4

REPORT INFORMATION
  Report Type: Spontaneous
  Country: US (occurrence: None)
  Receive Date: 20131007
  Receipt Date: 20131007
  Transmission Date: 20140711
  Serious: No
  Sender: FDA-Public Use
  Company Number: None

PATIENT
  Sex: 0

DRUGS (1)
  1. SERTRALINE [Suspect]

REACTIONS (4)
  - Dizziness [None]
  - Dizziness [None]
  - Somnolence [None]
  - Tremor [None]
